FAERS Safety Report 4506909-2 (Version None)
Quarter: 2004Q4

REPORT INFORMATION
  Report Type: 
  Country: None (occurrence: None)
  Receive Date: 20041117
  Receipt Date: 20041104
  Transmission Date: 20050328
  Serious: Yes (Other)
  Sender: FDA-Public Use
  Company Number: 2004088549

PATIENT
  Age: 13 Year
  Sex: Male

DRUGS (4)
  1. CETIRIZINE / PSEUDOEPHEDRINE (PSEUDOEPHEDRINE, CETIRIZINE) [Suspect]
     Indication: RHINITIS ALLERGIC
     Dosage: ORAL
     Route: 048
     Dates: start: 20041023, end: 20041023
  2. ROXITHROMYCIN (ROXITHROMYCIN) [Suspect]
     Indication: SINUSITIS
     Dosage: ORAL
     Route: 048
     Dates: start: 20041023, end: 20041023
  3. VARIDASE (STREPTODORNASE, STREPTOKINASE) [Suspect]
     Indication: SINUSITIS
     Dosage: ORAL
     Route: 048
     Dates: start: 20041023, end: 20041023
  4. HYDROXYZINE [Suspect]
     Indication: ILL-DEFINED DISORDER

REACTIONS (5)
  - CONVULSION [None]
  - CYANOSIS [None]
  - GAZE PALSY [None]
  - LOSS OF CONSCIOUSNESS [None]
  - TONIC CLONIC MOVEMENTS [None]
